FAERS Safety Report 12081350 (Version 1)
Quarter: 2016Q1

REPORT INFORMATION
  Report Type: Spontaneous
  Country: US (occurrence: US)
  Receive Date: 20160216
  Receipt Date: 20160216
  Transmission Date: 20160526
  Serious: Yes (Other)
  Sender: FDA-Public Use
  Company Number: US-PFIZER INC-2016085138

PATIENT
  Age: 85 Year
  Sex: Female

DRUGS (2)
  1. CELEBREX [Suspect]
     Active Substance: CELECOXIB
     Dosage: 200 MG, 1X/DAY
  2. CELEBREX [Suspect]
     Active Substance: CELECOXIB
     Dosage: 200 MG, ALTERNATE DAY (SKIPPING HER CELEBREX EVERY OTHER DAY)

REACTIONS (2)
  - Rheumatoid arthritis [Unknown]
  - Intentional product misuse [Unknown]
